FAERS Safety Report 14206895 (Version 3)
Quarter: 2018Q1

REPORT INFORMATION
  Report Type: Report from Study
  Country: None (occurrence: CO)
  Receive Date: 20171121
  Receipt Date: 20180126
  Transmission Date: 20180508
  Serious: Yes (Death, Hospitalization, Other)
  Sender: FDA-Public Use
  Company Number: CO-ABBVIE-17K-036-2169504-00

PATIENT
  Age: 73 Year
  Sex: Male
  Weight: 96 kg

DRUGS (1)
  1. HUMIRA [Suspect]
     Active Substance: ADALIMUMAB
     Indication: PSORIASIS
     Route: 058
     Dates: start: 20110610, end: 20170623

REACTIONS (14)
  - Skin infection [Fatal]
  - Cardio-respiratory arrest [Fatal]
  - Limb injury [Recovering/Resolving]
  - Cellulitis [Recovering/Resolving]
  - Superinfection [Recovered/Resolved]
  - Hypertensive cardiomyopathy [Recovering/Resolving]
  - Soft tissue atrophy [Recovering/Resolving]
  - Accident [Unknown]
  - Oedema peripheral [Not Recovered/Not Resolved]
  - Hepatic cirrhosis [Recovering/Resolving]
  - Psoriasis [Fatal]
  - Chronic kidney disease [Recovering/Resolving]
  - Abdominal distension [Recovering/Resolving]
  - Gastrointestinal haemorrhage [Recovering/Resolving]

NARRATIVE: CASE EVENT DATE: 20171017
